FAERS Safety Report 8603561-1 (Version None)
Quarter: 2012Q3

REPORT INFORMATION
  Report Type: 
  Country: None (occurrence: None)
  Receive Date: 20120817
  Receipt Date: 20120815
  Transmission Date: 20120928
  Serious: Yes (Life-Threatening, Other)
  Sender: FDA-Public Use
  Company Number: PHHY2012GB070536

PATIENT
  Age: 82 Year
  Sex: Female
  Weight: 57.153 kg

DRUGS (2)
  1. LITHIUM CARBONATE [Interacting]
  2. RAMIPRIL [Suspect]
     Dosage: UNK
     Dates: start: 20120521

REACTIONS (4)
  - DRUG INTERACTION [None]
  - EPIDERMAL GROWTH FACTOR RECEPTOR DECREASED [None]
  - DRUG LEVEL INCREASED [None]
  - GLOMERULAR FILTRATION RATE DECREASED [None]
